FAERS Safety Report 23524907 (Version 1)
Quarter: 2024Q1

REPORT INFORMATION
  Report Type: Spontaneous
  Country: US (occurrence: US)
  Receive Date: 20240215
  Receipt Date: 20240215
  Transmission Date: 20240409
  Serious: Yes (Life-Threatening, Hospitalization)
  Sender: FDA-Public Use
  Company Number: US-MACLEODS PHARMACEUTICALS US LTD-MAC2024045830

PATIENT

DRUGS (2)
  1. METHIMAZOLE [Suspect]
     Active Substance: METHIMAZOLE
     Indication: Graves^ disease
     Dosage: 15 MILLIGRAM, BID, (0.54 MG/KG/DAY)
     Route: 065
  2. ATENOLOL [Concomitant]
     Active Substance: ATENOLOL
     Indication: Product used for unknown indication
     Dosage: 25 MILLIGRAM, QD
     Route: 065

REACTIONS (7)
  - Septic shock [Recovered/Resolved]
  - Systolic hypertension [Recovered/Resolved]
  - Syncope [Recovered/Resolved]
  - Beta haemolytic streptococcal infection [Recovered/Resolved]
  - Pharyngitis streptococcal [Recovered/Resolved]
  - Agranulocytosis [Recovered/Resolved]
  - Urticaria [Recovered/Resolved]
